FAERS Safety Report 5530805-5 (Version None)
Quarter: 2007Q4

REPORT INFORMATION
  Report Type: 
  Country: None (occurrence: None)
  Receive Date: 20071130
  Receipt Date: 20071126
  Transmission Date: 20080405
  Serious: Yes (Hospitalization)
  Sender: FDA-Public Use
  Company Number: AR-AVENTIS-200716100GDDC

PATIENT
  Sex: Female

DRUGS (7)
  1. LANTUS [Suspect]
     Route: 058
     Dates: start: 20070708, end: 20070708
  2. OPTIPEN (INSULIN PUMP) [Suspect]
  3. METFORMIN HCL [Concomitant]
     Route: 048
     Dates: start: 20070708
  4. ASPIRIN [Concomitant]
     Route: 048
     Dates: start: 20070708
  5. MAGNESIUM SULFATE [Concomitant]
     Route: 048
     Dates: start: 20070708
  6. ENALAPRIL [Concomitant]
     Route: 048
     Dates: start: 20070708
  7. INSULIN DETEMIR [Concomitant]
     Route: 058
     Dates: start: 20070701

REACTIONS (2)
  - HYPERGLYCAEMIA [None]
  - URINARY TRACT INFECTION [None]
